FAERS Safety Report 11132420 (Version 2)
Quarter: 2015Q2

REPORT INFORMATION
  Report Type: Spontaneous
  Country: US (occurrence: US)
  Receive Date: 20150522
  Receipt Date: 20150604
  Transmission Date: 20150821
  Serious: Yes (Other)
  Sender: FDA-Public Use
  Company Number: US-JAZZ-2015-US-007541

PATIENT
  Age: 67 Year
  Sex: Female
  Weight: 54.88 kg

DRUGS (32)
  1. TIZANIDINE (TIZANIDINE) [Concomitant]
     Active Substance: TIZANIDINE
     Indication: MUSCLE SPASMS
  2. MIRTAZAPINE. [Concomitant]
     Active Substance: MIRTAZAPINE
     Indication: INSOMNIA
  3. POTASSIUM [Concomitant]
     Active Substance: POTASSIUM
  4. VITAMIN C [Concomitant]
     Active Substance: ASCORBIC ACID
     Indication: SUPPLEMENTATION THERAPY
  5. KEPPRA [Concomitant]
     Active Substance: LEVETIRACETAM
     Indication: FIBROMYALGIA
  6. OMEPRAZOLE. [Concomitant]
     Active Substance: OMEPRAZOLE
     Indication: ABDOMINAL DISCOMFORT
  7. PROMETHAZINE [Concomitant]
     Active Substance: PROMETHAZINE\PROMETHAZINE HYDROCHLORIDE
     Indication: NAUSEA
  8. VITAMIN D [Concomitant]
     Active Substance: CHOLECALCIFEROL
     Indication: SUPPLEMENTATION THERAPY
  9. PRIALT [Suspect]
     Active Substance: ZICONOTIDE ACETATE
     Dosage: 0.208 ?G, QH
     Route: 037
     Dates: start: 20150507, end: 20150512
  10. MIRAPEX [Concomitant]
     Active Substance: PRAMIPEXOLE DIHYDROCHLORIDE
     Indication: RESTLESS LEGS SYNDROME
  11. IMIPRAMINE HCL [Concomitant]
     Active Substance: IMIPRAMINE HYDROCHLORIDE
     Indication: NOCTURIA
  12. PRIALT [Suspect]
     Active Substance: ZICONOTIDE ACETATE
     Indication: BACK PAIN
     Dosage: 0.05 ?G, QH
     Route: 037
     Dates: start: 20150410, end: 20150416
  13. PRIALT [Suspect]
     Active Substance: ZICONOTIDE ACETATE
     Dosage: 0.167 ?G, QH
     Route: 037
     Dates: start: 20150430, end: 20150506
  14. PRIALT [Suspect]
     Active Substance: ZICONOTIDE ACETATE
     Dosage: 0.229 ?G, QH
     Route: 037
     Dates: start: 20150519, end: 20150519
  15. ASPIRIN. [Concomitant]
     Active Substance: ASPIRIN
     Indication: CARDIOVASCULAR EVENT PROPHYLAXIS
  16. PRIALT [Suspect]
     Active Substance: ZICONOTIDE ACETATE
     Dosage: 0.125 ?G, QH
     Route: 037
     Dates: start: 20150423, end: 20150429
  17. PRIALT [Suspect]
     Active Substance: ZICONOTIDE ACETATE
     Dosage: 0.153 ?G, QH
     Dates: start: 20150526
  18. SONATA [Concomitant]
     Active Substance: ZALEPLON
     Indication: SLEEP DISORDER
  19. OPANA [Concomitant]
     Active Substance: OXYMORPHONE HYDROCHLORIDE
     Indication: PAIN
  20. MIRABEGRON [Concomitant]
     Active Substance: MIRABEGRON
     Indication: URINARY INCONTINENCE
  21. AMLODIPINE [Concomitant]
     Active Substance: AMLODIPINE BESYLATE
     Indication: HYPERTENSION
  22. LEFLUNOMIDE. [Concomitant]
     Active Substance: LEFLUNOMIDE
     Indication: SYSTEMIC LUPUS ERYTHEMATOSUS
  23. LECITHINE [Concomitant]
  24. FLONASE [Concomitant]
     Active Substance: FLUTICASONE PROPIONATE
  25. PRIALT [Suspect]
     Active Substance: ZICONOTIDE ACETATE
     Dosage: 0.1 ?G, UNK
     Route: 037
     Dates: start: 20150417, end: 20150422
  26. PRIALT [Suspect]
     Active Substance: ZICONOTIDE ACETATE
     Dosage: 0.254 ?G, QH
     Route: 037
     Dates: start: 20150513, end: 20150518
  27. RESTASIS [Concomitant]
     Active Substance: CYCLOSPORINE
  28. TEKTURNA [Concomitant]
     Active Substance: ALISKIREN HEMIFUMARATE
     Indication: BLOOD PRESSURE
  29. PRIALT [Suspect]
     Active Substance: ZICONOTIDE ACETATE
     Dosage: 0.178 ?G, QH
     Route: 037
     Dates: start: 20150520, end: 20150525
  30. MIRTAZAPINE. [Concomitant]
     Active Substance: MIRTAZAPINE
     Indication: DEPRESSION
  31. HYDROXYCHLOROQUINE [Concomitant]
     Active Substance: HYDROXYCHLOROQUINE
  32. PILOCARPINE HCL [Concomitant]
     Active Substance: PILOCARPINE HYDROCHLORIDE

REACTIONS (8)
  - Headache [Recovering/Resolving]
  - Asthenia [Recovering/Resolving]
  - Neck pain [Recovering/Resolving]
  - Depression [Recovering/Resolving]
  - Gait disturbance [Recovering/Resolving]
  - Eating disorder [Recovering/Resolving]
  - Activities of daily living impaired [Recovering/Resolving]
  - Abdominal discomfort [Recovering/Resolving]

NARRATIVE: CASE EVENT DATE: 20150519
